FAERS Safety Report 25220129 (Version 1)
Quarter: 2025Q2

REPORT INFORMATION
  Report Type: Spontaneous
  Country: US (occurrence: None)
  Receive Date: 20250419
  Receipt Date: 20250419
  Transmission Date: 20250716
  Serious: Yes (Disabling)
  Sender: FDA-CTU
  Company Number: None

PATIENT
  Age: 66 Year
  Sex: Male
  Weight: 95.4 kg

DRUGS (11)
  1. 7-HYDROXYMITRAGYNINE [Suspect]
     Active Substance: 7-HYDROXYMITRAGYNINE
     Indication: Depression
     Dates: start: 20241107, end: 20250419
  2. 7-HYDROXYMITRAGYNINE [Suspect]
     Active Substance: 7-HYDROXYMITRAGYNINE
     Indication: Pain
  3. 7-HYDROXYMITRAGYNINE [Suspect]
     Active Substance: 7-HYDROXYMITRAGYNINE
     Indication: Substance use
  4. HERBALS\MITRAGYNINE [Suspect]
     Active Substance: HERBALS\MITRAGYNINE
  5. TRINTELLIX [Concomitant]
     Active Substance: VORTIOXETINE HYDROBROMIDE
  6. NUVIGIL [Concomitant]
     Active Substance: ARMODAFINIL
  7. LOSARTAN [Concomitant]
     Active Substance: LOSARTAN
  8. CLONIDINE [Concomitant]
     Active Substance: CLONIDINE
  9. SUBOXONE [Concomitant]
     Active Substance: BUPRENORPHINE HYDROCHLORIDE\NALOXONE HYDROCHLORIDE
  10. Methyl-folate [Concomitant]
  11. VITAMIN D NOS [Concomitant]
     Active Substance: CHOLECALCIFEROL\ERGOCALCIFEROL

REACTIONS (14)
  - Drug dependence [None]
  - Emotional disorder [None]
  - Weight decreased [None]
  - Vomiting [None]
  - Decreased appetite [None]
  - Retrograde amnesia [None]
  - Fall [None]
  - Injury [None]
  - Epistaxis [None]
  - Orthostatic intolerance [None]
  - Somnolence [None]
  - Muscle spasms [None]
  - Dyskinesia [None]
  - Constipation [None]

NARRATIVE: CASE EVENT DATE: 20250417
